FAERS Safety Report 12935154 (Version 2)
Quarter: 2019Q2

REPORT INFORMATION
  Report Type: Report from Study
  Country: GB (occurrence: GB)
  Receive Date: 20161114
  Receipt Date: 20190531
  Transmission Date: 20190711
  Serious: Yes (Hospitalization, Other)
  Sender: FDA-Public Use
  Company Number: GB-BRISTOL-MYERS SQUIBB COMPANY-BMS-2016-056498

PATIENT
  Sex: Female

DRUGS (1)
  1. ABATACEPT [Suspect]
     Active Substance: ABATACEPT
     Indication: RHEUMATOID ARTHRITIS
     Dosage: 125 MG, EVERY 10 DAYS
     Route: 058
     Dates: start: 20140819

REACTIONS (7)
  - Urinary tract infection [Unknown]
  - Dysstasia [Unknown]
  - Gait disturbance [Unknown]
  - Malaise [Unknown]
  - Lower limb fracture [Recovering/Resolving]
  - Confusional state [Unknown]
  - Pain [Unknown]
